FAERS Safety Report 4889823-2 (Version None)
Quarter: 2006Q1

REPORT INFORMATION
  Report Type: 
  Country: None (occurrence: None)
  Receive Date: 20060124
  Receipt Date: 20051005
  Transmission Date: 20060701
  Serious: Yes (Hospitalization, Disabling)
  Sender: FDA-Public Use
  Company Number: US-MERCK-0510USA04787

PATIENT
  Age: 51 Year
  Sex: Male
  Weight: 80 kg

DRUGS (3)
  1. VIOXX [Suspect]
     Indication: ROTATOR CUFF REPAIR
     Route: 048
     Dates: start: 20030301, end: 20031201
  2. VIOXX [Suspect]
     Indication: PAIN
     Route: 048
     Dates: start: 20030301, end: 20031201
  3. VICODIN [Concomitant]
     Route: 048

REACTIONS (2)
  - FALL [None]
  - LACUNAR INFARCTION [None]
